FAERS Safety Report 4699108-5 (Version None)
Quarter: 2005Q2

REPORT INFORMATION
  Report Type: 
  Country: None (occurrence: None)
  Receive Date: 20050622
  Receipt Date: 20050622
  Transmission Date: 20051028
  Serious: Yes (Other)
  Sender: FDA-Public Use
  Company Number: None

PATIENT
  Age: 76 Year
  Sex: Female
  Weight: 79.3795 kg

DRUGS (1)
  1. ENBREL [Suspect]
     Indication: ARTHRITIS
     Dosage: 25 MG 2TIMES WKLY

REACTIONS (3)
  - DEHYDRATION [None]
  - FEELING ABNORMAL [None]
  - HAEMORRHAGE [None]
